FAERS Safety Report 4360468-6 (Version None)
Quarter: 2004Q2

REPORT INFORMATION
  Report Type: 
  Country: None (occurrence: None)
  Receive Date: 20040514
  Receipt Date: 20040505
  Transmission Date: 20050107
  Serious: No
  Sender: FDA-Public Use
  Company Number: 2004UW07304

PATIENT
  Age: 73 Year
  Sex: Female
  Weight: 49.4421 kg

DRUGS (7)
  1. CRESTOR [Suspect]
     Indication: HYPERCHOLESTEROLAEMIA
     Dosage: 10 MG QOD PO
     Route: 048
  2. INDOCIN [Concomitant]
  3. LISINOPRIL [Concomitant]
  4. LOPRESSOR [Concomitant]
  5. DETROL [Concomitant]
  6. PREVACID [Concomitant]
  7. COMPAZINE [Concomitant]

REACTIONS (1)
  - EPISTAXIS [None]
